FAERS Safety Report 25931479 (Version 1)
Quarter: 2025Q4

REPORT INFORMATION
  Report Type: Spontaneous
  Country: US (occurrence: US)
  Receive Date: 20251016
  Receipt Date: 20251016
  Transmission Date: 20260118
  Serious: Yes (Life-Threatening, Hospitalization, Other)
  Sender: DR REDDYS
  Company Number: US-DRL-USA-USA/2025/10/015495

PATIENT
  Age: 4 Month
  Sex: Male

DRUGS (2)
  1. VIGABATRIN [Suspect]
     Active Substance: VIGABATRIN
     Indication: Infantile spasms
     Dosage: 48 MG/KG/D DIVIDED TWICE DAILY
  2. VIGABATRIN [Suspect]
     Active Substance: VIGABATRIN
     Dosage: THE PATIENT WAS TRANSITIONED TO 3 TIMES DAILY (TID) DOSING AT THE SAME TOTAL DAILY DOSE (108 MG/KG/D

REACTIONS (4)
  - Hydrocephalus [Recovering/Resolving]
  - Cerebral disorder [Recovering/Resolving]
  - Tracheomalacia [Unknown]
  - Condition aggravated [Recovering/Resolving]
